FAERS Safety Report 11052185 (Version 2)
Quarter: 2015Q2

REPORT INFORMATION
  Report Type: Spontaneous
  Country: JP (occurrence: JP)
  Receive Date: 20150421
  Receipt Date: 20150608
  Transmission Date: 20150821
  Serious: Yes (Hospitalization, Disabling, Other)
  Sender: FDA-Public Use
  Company Number: PHJP2015JP002055

PATIENT
  Age: 64 Year
  Sex: Female
  Weight: 60 kg

DRUGS (6)
  1. MUCOSTA [Concomitant]
     Active Substance: REBAMIPIDE
     Indication: GASTRITIS
     Dosage: 100 MG, QD
     Route: 048
     Dates: start: 20141125
  2. CELECOX [Concomitant]
     Active Substance: CELECOXIB
     Indication: FLANK PAIN
     Dosage: 100 MG, QD
     Route: 048
     Dates: start: 20141125, end: 20150106
  3. AFINITOR [Suspect]
     Active Substance: EVEROLIMUS
     Indication: BREAST CANCER RECURRENT
     Dosage: 5 MG, BID
     Route: 048
     Dates: start: 20141104, end: 20150113
  4. LASIX [Concomitant]
     Active Substance: FUROSEMIDE
     Indication: OEDEMA DUE TO HEPATIC DISEASE
     Dosage: 20 MG, QD
     Route: 048
     Dates: start: 20141125, end: 20150325
  5. ALDACTONE [Concomitant]
     Active Substance: SPIRONOLACTONE
     Indication: OEDEMA DUE TO HEPATIC DISEASE
     Dosage: 25 MG, BID
     Route: 048
     Dates: start: 20141125, end: 20150106
  6. AROMASIN [Concomitant]
     Active Substance: EXEMESTANE
     Indication: BREAST CANCER
     Dosage: 25 MG, QD
     Route: 048
     Dates: start: 20141104

REACTIONS (8)
  - Interstitial lung disease [Recovering/Resolving]
  - Stomatitis [Recovering/Resolving]
  - Pyrexia [Unknown]
  - Pleural effusion [Recovering/Resolving]
  - Dyspnoea [Unknown]
  - Cough [Unknown]
  - Oedema due to hepatic disease [Unknown]
  - Anaemia [Recovered/Resolved]

NARRATIVE: CASE EVENT DATE: 20141118
